FAERS Safety Report 16800000 (Version 1)
Quarter: 2019Q4

REPORT INFORMATION
  Report Type: Spontaneous
  Country: US (occurrence: US)
  Receive Date: 20190912
  Receipt Date: 20190912
  Transmission Date: 20200122
  Serious: Yes (Hospitalization)
  Sender: FDA-Public Use
  Company Number: None

PATIENT
  Age: 58 Year
  Sex: Female

DRUGS (14)
  1. FLUOXETINE [Concomitant]
     Active Substance: FLUOXETINE HYDROCHLORIDE
  2. CARAFATE [Concomitant]
     Active Substance: SUCRALFATE
  3. ONDANSETRON [Concomitant]
     Active Substance: ONDANSETRON
  4. ALBUTEROL. [Concomitant]
     Active Substance: ALBUTEROL
  5. BUT/APAP [Concomitant]
  6. REPATHA [Suspect]
     Active Substance: EVOLOCUMAB
     Indication: PRODUCT USED FOR UNKNOWN INDICATION
     Dosage: ?          OTHER FREQUENCY:EVERY 14 DAYS;?
     Route: 058
     Dates: start: 20180314
  7. PANTOPRAZOLE [Concomitant]
     Active Substance: PANTOPRAZOLE
  8. DEXTROAMPHET SACCHARAT, AMPHET ASPARTATE, DEXTROAMPHET SULFATE AND AMPHET SULFAT [Concomitant]
     Active Substance: AMPHETAMINE ASPARTATE\AMPHETAMINE SULFATE\DEXTROAMPHETAMINE SACCHARATE\DEXTROAMPHETAMINE SULFATE
  9. BACLOFEN. [Concomitant]
     Active Substance: BACLOFEN
  10. FLUOCINONIDE. [Concomitant]
     Active Substance: FLUOCINONIDE
  11. GABAPENTIN. [Concomitant]
     Active Substance: GABAPENTIN
  12. LORAZEPAM. [Concomitant]
     Active Substance: LORAZEPAM
  13. METOCLOPRAM [Concomitant]
     Active Substance: METOCLOPRAMIDE
  14. RANITIDINE. [Concomitant]
     Active Substance: RANITIDINE

REACTIONS (1)
  - Intestinal obstruction [None]

NARRATIVE: CASE EVENT DATE: 20190804
